FAERS Safety Report 10606360 (Version 1)
Quarter: 2014Q4

REPORT INFORMATION
  Report Type: Spontaneous
  Country: DE (occurrence: DE)
  Receive Date: 20141125
  Receipt Date: 20141125
  Transmission Date: 20150529
  Serious: Yes (Other)
  Sender: FDA-Public Use
  Company Number: PHHY2014DE148993

PATIENT
  Age: 60 Year
  Sex: Male

DRUGS (18)
  1. SOLIAN [Concomitant]
     Active Substance: AMISULPRIDE
     Dosage: 200 MG
     Route: 048
     Dates: start: 20140802, end: 20140805
  2. SOLIAN [Concomitant]
     Active Substance: AMISULPRIDE
     Dosage: 150 MG
     Route: 048
     Dates: start: 20140806, end: 20140808
  3. MELPERON [Concomitant]
     Active Substance: MELPERONE
     Indication: PRODUCT USED FOR UNKNOWN INDICATION
     Dosage: 250 MG
     Route: 048
     Dates: start: 20140815
  4. MELPERON [Concomitant]
     Active Substance: MELPERONE
     Dosage: 200 MG
     Route: 048
     Dates: start: 20140816, end: 20140818
  5. LEPONEX [Interacting]
     Active Substance: CLOZAPINE
     Dosage: 100 MG
     Route: 048
     Dates: start: 20140815
  6. SOLIAN [Concomitant]
     Active Substance: AMISULPRIDE
     Dosage: 300 MG
     Route: 048
     Dates: start: 20140731, end: 20140801
  7. DIAZEPAM. [Concomitant]
     Active Substance: DIAZEPAM
     Indication: PRODUCT USED FOR UNKNOWN INDICATION
     Dosage: 11 MG
     Route: 048
     Dates: start: 20140728, end: 20140730
  8. LEPONEX [Suspect]
     Active Substance: CLOZAPINE
     Indication: PRODUCT USED FOR UNKNOWN INDICATION
     Dosage: 450 MG
     Route: 048
     Dates: end: 20140812
  9. DIAZEPAM. [Concomitant]
     Active Substance: DIAZEPAM
     Dosage: 9 MG
     Route: 048
     Dates: start: 20140808
  10. TAXILAN [Interacting]
     Active Substance: PERAZINE
     Indication: PRODUCT USED FOR UNKNOWN INDICATION
     Dosage: 75 MG
     Route: 048
     Dates: start: 20140802, end: 20140806
  11. TAXILAN [Interacting]
     Active Substance: PERAZINE
     Dosage: 50 TO 100 MG
     Route: 048
     Dates: start: 20140807, end: 20140815
  12. MELPERON [Concomitant]
     Active Substance: MELPERONE
     Dosage: 100 MG
     Route: 048
     Dates: start: 20140819, end: 20140820
  13. LEPONEX [Interacting]
     Active Substance: CLOZAPINE
     Dosage: 150 MG
     Route: 048
     Dates: start: 20140816
  14. DIAZEPAM. [Concomitant]
     Active Substance: DIAZEPAM
     Dosage: 15 MG
     Route: 048
     Dates: start: 20140731, end: 20140805
  15. DIAZEPAM. [Concomitant]
     Active Substance: DIAZEPAM
     Dosage: 13 MG
     Route: 048
     Dates: start: 20140806, end: 20140807
  16. RISPERDAL [Concomitant]
     Active Substance: RISPERIDONE
     Indication: PRODUCT USED FOR UNKNOWN INDICATION
     Dosage: 3 TO 5 MG
     Route: 048
     Dates: start: 20140728
  17. SOLIAN [Concomitant]
     Active Substance: AMISULPRIDE
     Indication: PRODUCT USED FOR UNKNOWN INDICATION
     Dosage: 400 MG
     Route: 048
     Dates: start: 20140730
  18. SOLIAN [Concomitant]
     Active Substance: AMISULPRIDE
     Dosage: 50 MG
     Route: 048
     Dates: start: 20140809, end: 20140810

REACTIONS (5)
  - Salivary hypersecretion [Recovered/Resolved]
  - Drug interaction [Recovered/Resolved]
  - Speech disorder [Recovered/Resolved]
  - Drug level increased [Recovered/Resolved]
  - Fatigue [Recovered/Resolved]

NARRATIVE: CASE EVENT DATE: 20140808
